FAERS Safety Report 6054762-0 (Version None)
Quarter: 2009Q1

REPORT INFORMATION
  Report Type: 
  Country: None (occurrence: None)
  Receive Date: 20090128
  Receipt Date: 20090120
  Transmission Date: 20090719
  Serious: Yes (Other)
  Sender: FDA-Public Use
  Company Number: US-AMGEN-QUU329365

PATIENT
  Sex: Female

DRUGS (3)
  1. ENBREL [Suspect]
     Indication: RHEUMATOID ARTHRITIS
  2. ARAVA [Suspect]
     Indication: RHEUMATOID ARTHRITIS
     Route: 048
     Dates: start: 20080401, end: 20081001
  3. LIPITOR [Concomitant]

REACTIONS (3)
  - ALOPECIA [None]
  - HYPERTHYROIDISM [None]
  - WHITE BLOOD CELL COUNT INCREASED [None]
